FAERS Safety Report 7709250 (Version 2)
Quarter: 2013Q3

REPORT INFORMATION
  Report Type: Report from Study
  Country: US (occurrence: US)
  Receive Date: 20101214
  Receipt Date: 20130819
  Transmission Date: 20140515
  Serious: Yes (Hospitalization)
  Sender: FDA-Public Use
  Company Number: US-ASTRAZENECA-2010SE33367

PATIENT
  Age: 60 Year
  Sex: Male
  Weight: 104.3 kg

DRUGS (5)
  1. CRESTOR [Suspect]
     Indication: BLOOD CHOLESTEROL INCREASED
     Route: 048
     Dates: start: 2011
  2. CRESTOR [Suspect]
     Indication: BLOOD CHOLESTEROL INCREASED
     Dosage: HALF OF 20 MG, DAILY
     Route: 048
  3. CRESTOR [Suspect]
     Indication: BLOOD CHOLESTEROL INCREASED
     Route: 048
  4. UNSPECIFIED EPILEPSY MEDICATION [Concomitant]
  5. OTHER UNSPECIFIED MEDICATIONS [Concomitant]

REACTIONS (8)
  - Chondropathy [Recovered/Resolved]
  - Constricted affect [Unknown]
  - Hypophagia [Unknown]
  - Weight decreased [Not Recovered/Not Resolved]
  - Hypertension [Recovered/Resolved]
  - Cough [Unknown]
  - Diabetes mellitus [Recovered/Resolved]
  - Intentional drug misuse [Recovered/Resolved]
